FAERS Safety Report 13732963 (Version 1)
Quarter: 2017Q3

REPORT INFORMATION
  Report Type: Spontaneous
  Country: US (occurrence: US)
  Receive Date: 20170707
  Receipt Date: 20170707
  Transmission Date: 20171127
  Serious: No
  Sender: FDA-Public Use
  Company Number: US-ROCHE-1314081

PATIENT
  Sex: Female

DRUGS (3)
  1. NAVELBINE [Concomitant]
     Active Substance: VINORELBINE TARTRATE
  2. PERJETA [Suspect]
     Active Substance: PERTUZUMAB
     Indication: PRODUCT USED FOR UNKNOWN INDICATION
     Route: 065
  3. HERCEPTIN [Concomitant]
     Active Substance: TRASTUZUMAB
     Route: 065

REACTIONS (3)
  - Alopecia [Unknown]
  - Madarosis [Unknown]
  - Stomatitis [Unknown]
